FAERS Safety Report 8223045-2 (Version None)
Quarter: 2012Q1

REPORT INFORMATION
  Report Type: 
  Country: None (occurrence: None)
  Receive Date: 20120321
  Receipt Date: 20120312
  Transmission Date: 20120608
  Serious: Yes (Hospitalization, Other)
  Sender: FDA-Public Use
  Company Number: US-ASTRAZENECA-2011SE32276

PATIENT
  Age: 64 Year
  Sex: Female

DRUGS (11)
  1. PROIGIL [Concomitant]
     Indication: SLEEP APNOEA SYNDROME
  2. ASPIRIN [Concomitant]
  3. NEXIUM [Suspect]
     Indication: GASTROOESOPHAGEAL REFLUX DISEASE
     Dosage: TWO TIMES A DAY
     Route: 048
     Dates: start: 20030101
  4. HYDROCODONE [Concomitant]
     Indication: PAIN
  5. VITAMIN D [Concomitant]
  6. ASCORBIC ACID [Concomitant]
  7. CELEBREX [Concomitant]
  8. NEXIUM [Suspect]
     Route: 048
     Dates: start: 20020304, end: 20110403
  9. LIPITOR [Concomitant]
     Indication: BLOOD CHOLESTEROL
  10. GLYBURIDE [Concomitant]
     Indication: DIABETES MELLITUS
  11. METFORMIN HCL [Concomitant]
     Indication: DIABETES MELLITUS

REACTIONS (16)
  - SPINAL FRACTURE [None]
  - RIB FRACTURE [None]
  - OSTEOPOROSIS [None]
  - SPINAL OSTEOARTHRITIS [None]
  - VERTEBRAL FORAMINAL STENOSIS [None]
  - SPINAL COMPRESSION FRACTURE [None]
  - LUMBAR SPINAL STENOSIS [None]
  - PAIN [None]
  - ANXIETY [None]
  - BONE DENSITY DECREASED [None]
  - SKULL FRACTURE [None]
  - CEREBROVASCULAR ACCIDENT [None]
  - OSTEOARTHRITIS [None]
  - LUMBAR VERTEBRAL FRACTURE [None]
  - INFLUENZA [None]
  - ARTHRITIS [None]
